FAERS Safety Report 7269618-5 (Version None)
Quarter: 2011Q1

REPORT INFORMATION
  Report Type: 
  Country: None (occurrence: None)
  Receive Date: 20110124
  Receipt Date: 20110107
  Transmission Date: 20110831
  Serious: Yes (Other)
  Sender: FDA-Public Use
  Company Number: ACO_21376_2011

PATIENT
  Age: 36 Year
  Sex: Male

DRUGS (7)
  1. SOMA [Concomitant]
  2. AMPYRA [Suspect]
     Indication: PRODUCT USED FOR UNKNOWN INDICATION
     Dosage: 10 MG, Q 12 HRS, ORAL
     Route: 048
     Dates: start: 20101201
  3. TRAZODONE [Concomitant]
  4. METHOTREXATE [Concomitant]
  5. GABITRIL [Concomitant]
  6. VICODIN ES [Concomitant]
  7. VALIUM [Concomitant]

REACTIONS (10)
  - LACERATION [None]
  - HYPERHIDROSIS [None]
  - TUNNEL VISION [None]
  - FALL [None]
  - HEAD INJURY [None]
  - LOSS OF CONSCIOUSNESS [None]
  - TINNITUS [None]
  - NAUSEA [None]
  - INAPPROPRIATE SCHEDULE OF DRUG ADMINISTRATION [None]
  - ACCIDENTAL OVERDOSE [None]
